FAERS Safety Report 4279937-2 (Version None)
Quarter: 2004Q1

REPORT INFORMATION
  Report Type: 
  Country: None (occurrence: None)
  Receive Date: 20040126
  Receipt Date: 20040109
  Transmission Date: 20041129
  Serious: Yes (Death, Hospitalization)
  Sender: FDA-Public Use
  Company Number: DSA_23834_2004

PATIENT
  Age: 77 Year
  Sex: Female

DRUGS (14)
  1. TAVOR [Suspect]
     Dosage: 0.5 MG PO
     Route: 048
     Dates: start: 20030602, end: 20030606
  2. TAVOR [Suspect]
     Dosage: 1 MG Q DAY PO
     Route: 048
     Dates: start: 20030607, end: 20030625
  3. TAVOR [Suspect]
     Dosage: 0.75 MG Q DAY PO
     Route: 048
     Dates: start: 20030626, end: 20030710
  4. TAVOR [Suspect]
     Dosage: 0.25 MG Q DAY PO
     Route: 048
     Dates: start: 20030711, end: 20030714
  5. ESIDRIX [Suspect]
     Dosage: 12.5 MG PO
     Route: 048
     Dates: start: 20030527, end: 20030625
  6. ZOLOFT [Concomitant]
  7. XIMOVAN [Concomitant]
  8. KREON [Concomitant]
  9. HALDOL [Concomitant]
  10. NORTRILEN [Concomitant]
  11. TEBONIN [Concomitant]
  12. JARSIN [Concomitant]
  13. FLUANXOL [Concomitant]
  14. NORTRILEN [Concomitant]

REACTIONS (5)
  - COLON CANCER [None]
  - CONDITION AGGRAVATED [None]
  - DRUG INTERACTION POTENTIATION [None]
  - HYPONATRAEMIA [None]
  - INTESTINAL PERFORATION [None]
